FAERS Safety Report 9511469 (Version 1)
Quarter: 2013Q1

REPORT INFORMATION
  Report Type: Spontaneous
  Country: US (occurrence: None)
  Receive Date: 20130305
  Receipt Date: 20130305
  Transmission Date: 20140127
  Serious: Yes (Hospitalization)
  Sender: FDA-Public Use
  Company Number: 163-21880-12051943

PATIENT
  Age: 67 Year
  Sex: Male
  Weight: 99.79 kg

DRUGS (8)
  1. REVLIMID (LENALIDOMIDE) (25 MILLIGRAM, CAPSULES) [Suspect]
     Indication: PLASMA CELL MYELOMA
     Dosage: 25 MG, DAILY FOR 21 DAYS, PO?
     Route: 048
     Dates: start: 201111
  2. DEXAMETHASONE (DEXAMETHASONE) (TABLETS) [Concomitant]
  3. LOVAZA (OMEGA-3 MARINE TRIGLYCERIDES) (UNKNOWN) [Concomitant]
  4. METOPROLOL (METOPROLOL) (UNKNOWN) [Concomitant]
  5. GLIMEPIRIDE (GLIMEPIRIDE) (UNKNOWN) [Concomitant]
  6. ECOTRIN (ACETYLSALICYLIC ACID) (UNKNOWN) [Concomitant]
  7. CRESTOR (ROSUVASTATIN) (UNKNOWN) [Concomitant]
  8. PLAVIX (CLOPIDOGREL SULFATE) (UNKNOWN) [Concomitant]

REACTIONS (1)
  - Thrombosis [None]
